FAERS Safety Report 7396382-1 (Version None)
Quarter: 2011Q2

REPORT INFORMATION
  Report Type: 
  Country: None (occurrence: None)
  Receive Date: 20110406
  Receipt Date: 20100304
  Transmission Date: 20111010
  Serious: Yes (Death, Hospitalization, Other)
  Sender: FDA-Public Use
  Company Number: US-BAYER-201015441NA

PATIENT
  Sex: Female
  Weight: 11 kg

DRUGS (16)
  1. TRASYLOL [Suspect]
     Indication: CARDIAC OPERATION
     Dosage: 1 ML, ONCE
     Dates: start: 19950707, end: 19950707
  2. VERSED [Concomitant]
     Dosage: 2 MG, UNK
     Route: 042
     Dates: start: 19950707
  3. CONTRAST MEDIA [Concomitant]
     Dosage: 12 ML, UNK
     Dates: start: 19950501
  4. MIDAZOLAM [Concomitant]
     Dosage: 1 MG, UNK
     Route: 042
     Dates: start: 19950707
  5. FENTANYL [Concomitant]
     Dosage: 415 MCG, UNK
     Route: 042
     Dates: start: 19950707
  6. ALBUMIN (HUMAN) [Concomitant]
     Dosage: 50 ML, UNK
     Dates: start: 19950707
  7. EPINEPHRINE [Concomitant]
     Dosage: UNK
     Route: 042
     Dates: start: 19950707
  8. HEPARIN [Concomitant]
     Dosage: 3300 U, UNK
     Route: 042
     Dates: start: 19950707
  9. HALOTHANE [Concomitant]
     Dosage: UNK
     Dates: start: 19950707
  10. CONTRAST MEDIA [Concomitant]
     Dosage: 12 ML, UNK
     Dates: start: 19950712
  11. DOPAMINE [Concomitant]
     Dosage: UNK
     Route: 042
     Dates: start: 19950707
  12. SUCCINYLCHOLINE CHLORIDE [Concomitant]
     Dosage: 3 ML, UNK
     Route: 030
     Dates: start: 19950707
  13. TRASYLOL [Suspect]
     Indication: VENTRICULAR SEPTAL DEFECT REPAIR
     Dosage: 87 ML, ONCE
     Route: 042
     Dates: start: 19950707, end: 19950707
  14. CEFAZOLIN [Concomitant]
     Dosage: 225 MG, UNK
     Route: 042
     Dates: start: 19950707
  15. TRASYLOL [Suspect]
     Indication: LUNG OPERATION
     Dosage: 20 ML/HOUR
     Route: 042
     Dates: start: 19950707, end: 19950707
  16. PROTAMINE SULFATE [Concomitant]
     Dosage: 50 MG, UNK
     Route: 042
     Dates: start: 19950707

REACTIONS (8)
  - DEATH [None]
  - RENAL FAILURE [None]
  - CEREBROVASCULAR ACCIDENT [None]
  - PAIN [None]
  - ANXIETY [None]
  - CONVULSION [None]
  - RENAL FAILURE ACUTE [None]
  - INJURY [None]
